FAERS Safety Report 5115958-5 (Version None)
Quarter: 2006Q3

REPORT INFORMATION
  Report Type: 
  Country: None (occurrence: None)
  Receive Date: 20060927
  Receipt Date: 20051208
  Transmission Date: 20061208
  Serious: No
  Sender: FDA-Public Use
  Company Number: US-BRISTOL-MYERS SQUIBB COMPANY-13211198

PATIENT
  Sex: Male
  Weight: 107 kg

DRUGS (7)
  1. DEFINITY [Suspect]
     Indication: CARDIAC FAILURE CONGESTIVE
     Route: 042
  2. TOPROL-XL [Concomitant]
  3. CELEXA [Concomitant]
  4. FOLIC ACID [Concomitant]
  5. RYTHMOL [Concomitant]
  6. LIPITOR [Concomitant]
  7. GLUCOPHAGE [Concomitant]

REACTIONS (3)
  - DIZZINESS [None]
  - FLUSHING [None]
  - HEADACHE [None]
